FAERS Safety Report 7253941-4 (Version None)
Quarter: 2011Q1

REPORT INFORMATION
  Report Type: 
  Country: None (occurrence: None)
  Receive Date: 20110129
  Receipt Date: 20100316
  Transmission Date: 20110831
  Serious: No
  Sender: FDA-Public Use
  Company Number: US-ABBOTT-10P-163-0632508-00

PATIENT
  Sex: Female
  Weight: 48.124 kg

DRUGS (2)
  1. HUMIRA [Suspect]
     Indication: PSORIATIC ARTHROPATHY
     Dates: start: 20100315
  2. HUMIRA [Suspect]
     Dates: start: 20050301, end: 20100201

REACTIONS (1)
  - VULVOVAGINAL MYCOTIC INFECTION [None]
